FAERS Safety Report 4534472-9 (Version None)
Quarter: 2004Q4

REPORT INFORMATION
  Report Type: 
  Country: None (occurrence: None)
  Receive Date: 20041221
  Receipt Date: 20041221
  Transmission Date: 20050328
  Serious: Yes (Life-Threatening)
  Sender: FDA-Public Use
  Company Number: None

PATIENT
  Age: 42 Year
  Sex: Male

DRUGS (3)
  1. PROPOFOL [Suspect]
     Indication: STATUS EPILEPTICUS
     Dosage: 6 MG/KG/HR
  2. PHENYTOIN [Concomitant]
  3. VALPROIC ACID [Concomitant]

REACTIONS (6)
  - BLOOD PHOSPHORUS DECREASED [None]
  - BLOOD PRESSURE DECREASED [None]
  - CARDIAC DISORDER [None]
  - CONDITION AGGRAVATED [None]
  - STATUS EPILEPTICUS [None]
  - URINE OUTPUT DECREASED [None]
